FAERS Safety Report 24313383 (Version 1)
Quarter: 2024Q3

REPORT INFORMATION
  Report Type: Spontaneous
  Country: US (occurrence: US)
  Receive Date: 20240912
  Receipt Date: 20240912
  Transmission Date: 20241017
  Serious: No
  Sender: AMGEN
  Company Number: US-AMGEN-USASP2024181552

PATIENT
  Age: 40 Year
  Sex: Male

DRUGS (11)
  1. OTEZLA [Suspect]
     Active Substance: APREMILAST
     Indication: Psoriasis
     Dosage: 30 MILLIGRAM, BID
     Route: 048
     Dates: start: 20240607
  2. HERBALS\WITHANIA SOMNIFERA ROOT [Concomitant]
     Active Substance: HERBALS\WITHANIA SOMNIFERA ROOT
     Dosage: 500 MILLIGRAM
  3. BETAMETH DIPROPIONATE [Concomitant]
     Route: 065
  4. CLOBETASOL [Concomitant]
     Active Substance: CLOBETASOL
  5. CORTISONE [Concomitant]
     Active Substance: CORTISONE
  6. FISH OIL [Concomitant]
     Active Substance: FISH OIL
     Dosage: 1000 MILLIGRAM
  7. VITAMINS [Concomitant]
     Active Substance: VITAMINS
  8. Triamcinolon [Concomitant]
  9. VITAMIN B12 [Concomitant]
     Active Substance: CYANOCOBALAMIN
  10. VITAMIN D3 [Concomitant]
     Active Substance: CHOLECALCIFEROL
     Dosage: 2000 INTERNATIONAL UNIT
  11. ZINC [Concomitant]
     Active Substance: ZINC
     Dosage: 50 MILLIGRAM

REACTIONS (1)
  - Vertigo [Unknown]

NARRATIVE: CASE EVENT DATE: 20240101
